FAERS Safety Report 5048806-2 (Version None)
Quarter: 2006Q3

REPORT INFORMATION
  Report Type: 
  Country: None (occurrence: None)
  Receive Date: 20060705
  Receipt Date: 20060628
  Transmission Date: 20061208
  Serious: Yes (Other)
  Sender: FDA-Public Use
  Company Number: 200612706GDS

PATIENT
  Sex: 0

DRUGS (2)
  1. TRASYLOL [Suspect]
     Dosage: 10 ML, TOTAL DAILY, INTRAVENOUS
     Route: 042
  2. PANTOPRAZOLE SODIUM [Concomitant]

REACTIONS (4)
  - BLOOD PRESSURE DECREASED [None]
  - DIARRHOEA HAEMORRHAGIC [None]
  - HYPERSENSITIVITY [None]
  - SEPSIS [None]
